FAERS Safety Report 8184032-6 (Version None)
Quarter: 2012Q1

REPORT INFORMATION
  Report Type: 
  Country: None (occurrence: None)
  Receive Date: 20120301
  Receipt Date: 20120217
  Transmission Date: 20120608
  Serious: Yes (Hospitalization, Other)
  Sender: FDA-Public Use
  Company Number: AUR-APL-2012-01172

PATIENT
  Age: 56 Year
  Sex: Male

DRUGS (2)
  1. LAMOTRIGINE [Suspect]
     Indication: PRODUCT USED FOR UNKNOWN INDICATION
     Dosage: 600 MG (200 MG, 3 IN 1 D) ,ORAL
     Route: 048
  2. CLONAZEPAM [Concomitant]

REACTIONS (40)
  - LACERATION [None]
  - SCAR [None]
  - TONGUE INJURY [None]
  - NERVOUS SYSTEM DISORDER [None]
  - FACIAL BONES FRACTURE [None]
  - POSTICTAL STATE [None]
  - MENTAL STATUS CHANGES [None]
  - DISORIENTATION [None]
  - DISTURBANCE IN ATTENTION [None]
  - HYPERTONIA [None]
  - CONFUSIONAL STATE [None]
  - INFECTION [None]
  - ANTICONVULSANT DRUG LEVEL BELOW THERAPEUTIC [None]
  - ASPARTATE AMINOTRANSFERASE INCREASED [None]
  - NASAL SEPTUM DEVIATION [None]
  - BODY TEMPERATURE DECREASED [None]
  - MUSCLE SPASTICITY [None]
  - TOXICITY TO VARIOUS AGENTS [None]
  - OVERDOSE [None]
  - AGITATION [None]
  - NOSE DEFORMITY [None]
  - DRUG WITHDRAWAL SYNDROME [None]
  - BLOOD SODIUM INCREASED [None]
  - INCOHERENT [None]
  - SPEECH DISORDER [None]
  - BLOOD GLUCOSE INCREASED [None]
  - ELECTROCARDIOGRAM QT PROLONGED [None]
  - RHABDOMYOLYSIS [None]
  - FACE INJURY [None]
  - COGNITIVE DISORDER [None]
  - MOVEMENT DISORDER [None]
  - NEUROLEPTIC MALIGNANT SYNDROME [None]
  - SEROTONIN SYNDROME [None]
  - PARKINSONISM [None]
  - DRUG SCREEN POSITIVE [None]
  - GRAND MAL CONVULSION [None]
  - TREATMENT NONCOMPLIANCE [None]
  - BLOOD PRESSURE SYSTOLIC INCREASED [None]
  - ALANINE AMINOTRANSFERASE INCREASED [None]
  - MUSCLE RIGIDITY [None]
